FAERS Safety Report 6941392-9 (Version None)
Quarter: 2010Q3

REPORT INFORMATION
  Report Type: 
  Country: None (occurrence: None)
  Receive Date: 20100825
  Receipt Date: 20100813
  Transmission Date: 20110219
  Serious: Yes (Other)
  Sender: FDA-Public Use
  Company Number: US-WYE-H16931410

PATIENT
  Sex: Male
  Weight: 83.99 kg

DRUGS (3)
  1. EFFEXOR [Suspect]
     Route: 048
  2. COLCHICINE [Concomitant]
     Indication: PERICARDITIS
     Dosage: UNKNOWN
  3. PREDNISONE [Concomitant]
     Dosage: UNKNOWN

REACTIONS (2)
  - DRUG INEFFECTIVE [None]
  - PERICARDITIS [None]
